FAERS Safety Report 6863102-6 (Version None)
Quarter: 2010Q3

REPORT INFORMATION
  Report Type: 
  Country: None (occurrence: None)
  Receive Date: 20100721
  Receipt Date: 20100712
  Transmission Date: 20110219
  Serious: Yes (Other)
  Sender: FDA-Public Use
  Company Number: JP-PFIZER INC-2010086671

PATIENT

DRUGS (7)
  1. ZITHROMAC [Suspect]
     Dosage: UNK
     Route: 048
  2. PHENYTOIN SODIUM [Concomitant]
  3. PRIMIDONE [Concomitant]
     Route: 048
  4. EXCEGRAN [Concomitant]
     Route: 048
  5. MYSTAN [Concomitant]
     Route: 048
  6. LANSOPRAZOLE [Concomitant]
  7. LAMICTAL [Concomitant]
     Route: 048

REACTIONS (1)
  - ANTICONVULSANT DRUG LEVEL INCREASED [None]
